FAERS Safety Report 15684140 (Version 1)
Quarter: 2018Q4

REPORT INFORMATION
  Report Type: Spontaneous
  Country: PL (occurrence: PL)
  Receive Date: 20181204
  Receipt Date: 20181204
  Transmission Date: 20190205
  Serious: Yes (Other)
  Sender: FDA-Public Use
  Company Number: PL-009507513-1811POL012126

PATIENT
  Age: 6 Year
  Sex: Female

DRUGS (2)
  1. DESLODYNA [Suspect]
     Active Substance: DESLORATADINE
  2. SINGULAIR 5 [Suspect]
     Active Substance: MONTELUKAST SODIUM
     Dosage: DRUG ADMINISTRATION DURATION: FEW YEARS

REACTIONS (13)
  - Self-injurious ideation [Unknown]
  - Disturbance in attention [Unknown]
  - Violence-related symptom [Unknown]
  - Intrusive thoughts [Unknown]
  - Nightmare [Unknown]
  - Abnormal behaviour [Unknown]
  - Repetitive speech [Unknown]
  - Initial insomnia [Unknown]
  - Akathisia [Unknown]
  - Agitation [Unknown]
  - Anxiety [Unknown]
  - Hostility [Unknown]
  - Aggression [Unknown]
